FAERS Safety Report 7131120-9 (Version None)
Quarter: 2010Q4

REPORT INFORMATION
  Report Type: 
  Country: None (occurrence: None)
  Receive Date: 20101201
  Receipt Date: 20101118
  Transmission Date: 20110411
  Serious: Yes (Death, Hospitalization)
  Sender: FDA-Public Use
  Company Number: GXKR2010US13120

PATIENT
  Age: 57 Year
  Sex: Male

DRUGS (6)
  1. DEXAMETHASONE (NGX) [Suspect]
     Route: 065
  2. OXYCODONE HCL [Concomitant]
  3. FOLIC ACID [Concomitant]
  4. SULFAMETHOXAZOLE AND TRIMETHOPRIM [Concomitant]
     Dosage: 3 TIMES A WEEK
  5. RADIOTHERAPY [Concomitant]
  6. CHEMOTHERAPEUTICS NOS [Concomitant]

REACTIONS (21)
  - ABDOMINAL PAIN [None]
  - DEHYDRATION [None]
  - DIARRHOEA [None]
  - HYPERGLYCAEMIA [None]
  - HYPOALBUMINAEMIA [None]
  - HYPONATRAEMIA [None]
  - ILEUS PARALYTIC [None]
  - LIVER FUNCTION TEST ABNORMAL [None]
  - MALNUTRITION [None]
  - METAMYELOCYTE COUNT INCREASED [None]
  - NAUSEA [None]
  - NEUTROPHILIA [None]
  - NORMOCHROMIC NORMOCYTIC ANAEMIA [None]
  - OBLITERATIVE BRONCHIOLITIS [None]
  - RESPIRATORY FAILURE [None]
  - STRONGYLOIDIASIS [None]
  - TACHYCARDIA [None]
  - THROMBOCYTOPENIA [None]
  - VOMITING [None]
  - WEIGHT DECREASED [None]
  - WHITE BLOOD CELL COUNT INCREASED [None]
